FAERS Safety Report 11248611 (Version 1)
Quarter: 2015Q3

REPORT INFORMATION
  Report Type: Spontaneous
  Country: TR (occurrence: TR)
  Receive Date: 20150708
  Receipt Date: 20150708
  Transmission Date: 20151125
  Serious: Yes (Hospitalization, Other)
  Sender: FDA-Public Use
  Company Number: TR-CIPLA LTD.-2015TR05597

PATIENT

DRUGS (2)
  1. BIPERIDEN [Suspect]
     Active Substance: BIPERIDEN
     Dosage: 0.04 MG/KG, UNK
     Route: 065
  2. SERTRALINE [Suspect]
     Active Substance: SERTRALINE HYDROCHLORIDE
     Indication: MAJOR DEPRESSION
     Dosage: 50 MG, UNK
     Route: 065

REACTIONS (3)
  - Oculogyric crisis [Recovered/Resolved]
  - Feeling abnormal [Unknown]
  - Dystonia [Recovered/Resolved]
